FAERS Safety Report 25061007 (Version 1)
Quarter: 2025Q1

REPORT INFORMATION
  Report Type: Spontaneous
  Country: US (occurrence: US)
  Receive Date: 20250310
  Receipt Date: 20250310
  Transmission Date: 20250409
  Serious: No
  Sender: ALEXION PHARMACEUTICALS
  Company Number: US-AstraZeneca-CH-00823159A

PATIENT

DRUGS (5)
  1. AIRSUPRA [Suspect]
     Active Substance: ALBUTEROL SULFATE\BUDESONIDE
     Indication: Dyspnoea
     Dosage: TWO INHALATIONS, EVERY EIGHT HOURS
     Route: 065
  2. AIRSUPRA [Suspect]
     Active Substance: ALBUTEROL SULFATE\BUDESONIDE
     Indication: Wheezing
  3. AIRSUPRA [Suspect]
     Active Substance: ALBUTEROL SULFATE\BUDESONIDE
     Indication: Asthma
  4. ALBUTEROL [Concomitant]
     Active Substance: ALBUTEROL
     Route: 065
  5. IBRANCE [Concomitant]
     Active Substance: PALBOCICLIB
     Route: 065

REACTIONS (7)
  - Oral pain [Unknown]
  - Pain in jaw [Unknown]
  - Gingival pain [Unknown]
  - Teething [Unknown]
  - Mastication disorder [Unknown]
  - Insomnia [Unknown]
  - Expired product administered [Unknown]
